FAERS Safety Report 12496183 (Version 1)
Quarter: 2016Q2

REPORT INFORMATION
  Report Type: Spontaneous
  Country: US (occurrence: US)
  Receive Date: 20160624
  Receipt Date: 20160624
  Transmission Date: 20160815
  Serious: No
  Sender: FDA-Public Use
  Company Number: US-GLAXOSMITHKLINE-US2016088675

PATIENT
  Age: 72 Year
  Sex: Female

DRUGS (2)
  1. ABREVA [Suspect]
     Active Substance: DOCOSANOL
     Indication: ORAL HERPES
     Dosage: UNK, NEW TUBE
  2. ABREVA [Suspect]
     Active Substance: DOCOSANOL
     Dosage: UNK, OLD TUBE
     Dates: start: 20160621

REACTIONS (4)
  - Pruritus [Not Recovered/Not Resolved]
  - Incorrect drug administration duration [Unknown]
  - Burning sensation [Not Recovered/Not Resolved]
  - Condition aggravated [Not Recovered/Not Resolved]
